FAERS Safety Report 19404283 (Version 1)
Quarter: 2021Q2

REPORT INFORMATION
  Report Type: Spontaneous
  Country: US (occurrence: US)
  Receive Date: 20210611
  Receipt Date: 20210611
  Transmission Date: 20210717
  Serious: Yes (Hospitalization)
  Sender: FDA-Public Use
  Company Number: None

PATIENT
  Age: 52 Year
  Sex: Male
  Weight: 76.3 kg

DRUGS (1)
  1. CISPLATIN. [Suspect]
     Active Substance: CISPLATIN
     Dates: end: 20210517

REACTIONS (7)
  - Pyrexia [None]
  - Weight decreased [None]
  - Complication associated with device [None]
  - Dizziness [None]
  - Nausea [None]
  - Dyspnoea [None]
  - Adult failure to thrive [None]

NARRATIVE: CASE EVENT DATE: 20210601
